FAERS Safety Report 8938484 (Version 1)
Quarter: 2012Q4

REPORT INFORMATION
  Report Type: 
  Country: FR (occurrence: FR)
  Receive Date: 20121130
  Receipt Date: 20121130
  Transmission Date: 20130627
  Serious: Yes (Other)
  Sender: FDA-Public Use
  Company Number: FR-UCBSA-072114

PATIENT
  Age: 41 Year
  Sex: Female

DRUGS (5)
  1. CIMZIA [Suspect]
     Dosage: DAILY DOSE: 400 MG
     Route: 058
     Dates: start: 20120517, end: 20120523
  2. ARAVA [Suspect]
     Dosage: STRENGTH: 10 MG
     Route: 048
     Dates: start: 201108, end: 20120523
  3. CORTANCYL [Concomitant]
     Dosage: DAILY DOSE: 10 MG
     Dates: start: 20120524, end: 2012
  4. CORTANCYL [Concomitant]
     Dosage: AT REDUCED DOSE
     Dates: start: 2012
  5. QUESTRAN [Concomitant]
     Indication: TENOSYNOVITIS
     Dosage: FOR ELEVEN DAYS
     Dates: start: 20120524, end: 2012

REACTIONS (6)
  - Rash papular [Recovered/Resolved]
  - Rash pustular [Recovered/Resolved]
  - Tenosynovitis [Recovered/Resolved]
  - Skin exfoliation [Unknown]
  - Psoriasis [Unknown]
  - Muscle haemorrhage [Unknown]
